FAERS Safety Report 17121134 (Version 1)
Quarter: 2019Q4

REPORT INFORMATION
  Report Type: Spontaneous
  Country: US (occurrence: US)
  Receive Date: 20191114
  Receipt Date: 20191114
  Transmission Date: 20200122
  Serious: No
  Sender: FDA-Public Use
  Company Number: None

PATIENT

DRUGS (2)
  1. VITAMIN K [Suspect]
     Active Substance: PHYTONADIONE
     Route: 048
  2. VITAMIN K [Suspect]
     Active Substance: PHYTONADIONE

REACTIONS (3)
  - Product compounding quality issue [None]
  - Product dispensing issue [None]
  - Product contamination physical [None]
